FAERS Safety Report 19663144 (Version 1)
Quarter: 2021Q3

REPORT INFORMATION
  Report Type: Spontaneous
  Country: CN (occurrence: CN)
  Receive Date: 20210805
  Receipt Date: 20210805
  Transmission Date: 20211014
  Serious: Yes (Other)
  Sender: FDA-Public Use
  Company Number: CN-ZO SKIN HEALTH-2021ZOS00016

PATIENT
  Age: 17 Year
  Sex: Male

DRUGS (5)
  1. TRETINOIN. [Suspect]
     Active Substance: TRETINOIN
     Dosage: 20 MG, 1X/DAY
     Route: 065
  2. ARSENIC TRIOXIDE. [Suspect]
     Active Substance: ARSENIC TRIOXIDE
     Indication: ACUTE PROMYELOCYTIC LEUKAEMIA
     Dosage: 10 MG, 1X/DAY
     Route: 065
  3. IDARUBICIN [Concomitant]
     Active Substance: IDARUBICIN
     Dosage: 5 MG, 1X/DAY
     Route: 065
  4. TRETINOIN. [Suspect]
     Active Substance: TRETINOIN
     Indication: ACUTE PROMYELOCYTIC LEUKAEMIA
     Dosage: 20 MG, 1X/DAY
     Route: 065
  5. IDARUBICIN [Concomitant]
     Active Substance: IDARUBICIN
     Indication: WHITE BLOOD CELL COUNT INCREASED
     Dosage: 5 MG, 1X/DAY
     Route: 065

REACTIONS (1)
  - Differentiation syndrome [Recovered/Resolved]
